FAERS Safety Report 7314684-1 (Version None)
Quarter: 2011Q1

REPORT INFORMATION
  Report Type: 
  Country: None (occurrence: None)
  Receive Date: 20110225
  Receipt Date: 20101109
  Transmission Date: 20110831
  Serious: No
  Sender: FDA-Public Use
  Company Number: US-MYLANLABS-2010S1020591

PATIENT
  Age: 25 Year
  Sex: Female

DRUGS (2)
  1. AMNESTEEM [Suspect]
     Indication: ACNE
     Route: 048
     Dates: end: 20101104
  2. ORAL CONTRACEPTIVE NOS [Concomitant]

REACTIONS (4)
  - RASH [None]
  - HAEMATOCHEZIA [None]
  - ACNE [None]
  - ABDOMINAL PAIN [None]
